FAERS Safety Report 7407828-4 (Version None)
Quarter: 2011Q2

REPORT INFORMATION
  Report Type: 
  Country: None (occurrence: None)
  Receive Date: 20110406
  Receipt Date: 20110406
  Transmission Date: 20111010
  Serious: Yes (Other)
  Sender: FDA-Public Use
  Company Number: None

PATIENT
  Sex: Female
  Weight: 67.586 kg

DRUGS (2)
  1. CYMBALTA [Suspect]
     Indication: ANXIETY
     Dosage: 30 MG. 1 A DAY
     Dates: start: 20110317
  2. LEXAPRO [Suspect]
     Indication: ANXIETY
     Dosage: LEXAPRO 1 A DAY
     Dates: start: 20110319

REACTIONS (6)
  - DYSURIA [None]
  - BLOOD PRESSURE INCREASED [None]
  - MALAISE [None]
  - GASTROINTESTINAL DISORDER [None]
  - PAIN [None]
  - TINNITUS [None]
